FAERS Safety Report 16167109 (Version 1)
Quarter: 2019Q2

REPORT INFORMATION
  Report Type: Report from Study
  Country: BR (occurrence: BR)
  Receive Date: 20190408
  Receipt Date: 20190408
  Transmission Date: 20190711
  Serious: Yes (Other)
  Sender: FDA-Public Use
  Company Number: BR-SA-2019SA091957

PATIENT
  Age: 41 Year
  Sex: Male

DRUGS (1)
  1. ALEMTUZUMAB [Suspect]
     Active Substance: ALEMTUZUMAB
     Indication: MULTIPLE SCLEROSIS
     Dosage: UNK
     Route: 041
     Dates: start: 20181220, end: 20181224

REACTIONS (3)
  - Loss of consciousness [Recovering/Resolving]
  - Muscle spasms [Recovering/Resolving]
  - Generalised erythema [Recovering/Resolving]

NARRATIVE: CASE EVENT DATE: 20181220
